FAERS Safety Report 6672031-2 (Version None)
Quarter: 2010Q2

REPORT INFORMATION
  Report Type: 
  Country: None (occurrence: None)
  Receive Date: 20100406
  Receipt Date: 20100324
  Transmission Date: 20101027
  Serious: Yes (Hospitalization)
  Sender: FDA-Public Use
  Company Number: THQ2010A00625

PATIENT
  Age: 60 Year
  Sex: Male

DRUGS (1)
  1. LANSOPRAZOLE [Suspect]
     Indication: GASTROOESOPHAGEAL REFLUX DISEASE
     Dosage: 30 MG TAKEN PRN (ONCE EVERY 4/5 DAYS) PER ORAL
     Route: 048
     Dates: start: 20090301

REACTIONS (1)
  - ATRIAL FIBRILLATION [None]
